FAERS Safety Report 8976732 (Version 1)
Quarter: 2012Q4

REPORT INFORMATION
  Report Type: Report from Study
  Country: US (occurrence: US)
  Receive Date: 20121220
  Receipt Date: 20121220
  Transmission Date: 20130627
  Serious: Yes (Hospitalization, Other)
  Sender: FDA-Public Use
  Company Number: US-ABBOTT-12P-163-1022409-00

PATIENT
  Age: 53 Year
  Sex: Female

DRUGS (6)
  1. SYNTHROID [Concomitant]
  2. CALCIUM [Concomitant]
  3. HUMIRA [Suspect]
     Indication: RHEUMATOID ARTHRITIS
  4. PLAQUENIL [Concomitant]
     Indication: RHEUMATOID ARTHRITIS
     Dosage: Daily
  5. PREDNISONE [Concomitant]
     Indication: RHEUMATOID ARTHRITIS
     Dosage: Daily as needed
  6. AMBIEN [Concomitant]
     Indication: INSOMNIA
     Dosage: Every night

REACTIONS (8)
  - Thyroid neoplasm [Recovered/Resolved]
  - Cholecystectomy [Recovered/Resolved]
  - Abdominal pain [Recovered/Resolved]
  - Injection site pain [Recovered/Resolved]
  - Thyroidectomy [Recovered/Resolved]
  - Thyroid cancer [Recovered/Resolved]
  - Dysphagia [Recovered/Resolved]
  - Incorrect dose administered [Unknown]
